FAERS Safety Report 19949953 (Version 1)
Quarter: 2021Q4

REPORT INFORMATION
  Report Type: Spontaneous
  Country: US (occurrence: US)
  Receive Date: 20211008
  Receipt Date: 20211008
  Transmission Date: 20220303
  Serious: No
  Sender: FDA-Public Use
  Company Number: None

PATIENT
  Sex: Female
  Weight: 63.5 kg

DRUGS (13)
  1. IMATINIB MESYLATE [Suspect]
     Active Substance: IMATINIB MESYLATE
     Indication: Chronic myeloid leukaemia
     Route: 048
  2. IMATINIB MESYLATE [Suspect]
     Active Substance: IMATINIB MESYLATE
     Indication: Chronic myeloid leukaemia
  3. ALLOPURINOL [Concomitant]
     Active Substance: ALLOPURINOL
  4. ASPIRIN [Concomitant]
     Active Substance: ASPIRIN
  5. BENZONATATE [Concomitant]
     Active Substance: BENZONATATE
  6. DIAZEPAM [Concomitant]
     Active Substance: DIAZEPAM
  7. FAMOTIDINE [Concomitant]
     Active Substance: FAMOTIDINE
  8. LEVALBUTEROL [Concomitant]
     Active Substance: LEVALBUTEROL
  9. LIOTHYRONINE [Concomitant]
     Active Substance: LIOTHYRONINE
  10. LORATADINE [Concomitant]
     Active Substance: LORATADINE
  11. MONTELUKAST [Concomitant]
     Active Substance: MONTELUKAST SODIUM
  12. SPIRIVA [Concomitant]
     Active Substance: TIOTROPIUM BROMIDE MONOHYDRATE
  13. SYNTHROID [Concomitant]
     Active Substance: LEVOTHYROXINE SODIUM

REACTIONS (5)
  - Rash [None]
  - Weight increased [None]
  - Breast swelling [None]
  - Feeling abnormal [None]
  - Fluid retention [None]
